FAERS Safety Report 6999154-2 (Version None)
Quarter: 2010Q3

REPORT INFORMATION
  Report Type: 
  Country: None (occurrence: None)
  Receive Date: 20100920
  Receipt Date: 20091104
  Transmission Date: 20110219
  Serious: No
  Sender: FDA-Public Use
  Company Number: US-ASTRAZENECA-2009SE24396

PATIENT
  Sex: Female

DRUGS (1)
  1. SEROQUEL [Suspect]
     Route: 048

REACTIONS (8)
  - ABNORMAL BEHAVIOUR [None]
  - AGGRESSION [None]
  - ATRIAL FIBRILLATION [None]
  - CIRCADIAN RHYTHM SLEEP DISORDER [None]
  - DRY MOUTH [None]
  - INSOMNIA [None]
  - MUSCLE TWITCHING [None]
  - URINARY TRACT INFECTION [None]
